FAERS Safety Report 24843654 (Version 2)
Quarter: 2025Q3

REPORT INFORMATION
  Report Type: Spontaneous
  Country: US (occurrence: US)
  Receive Date: 20250115
  Receipt Date: 20250810
  Transmission Date: 20251021
  Serious: No
  Sender: ALEXION PHARMACEUTICALS
  Company Number: US-AstraZeneca-CH-00782760A

PATIENT

DRUGS (2)
  1. TEZSPIRE [Suspect]
     Active Substance: TEZEPELUMAB-EKKO
     Route: 065
  2. TEZSPIRE [Suspect]
     Active Substance: TEZEPELUMAB-EKKO

REACTIONS (12)
  - Asthma [Unknown]
  - Pulmonary function test decreased [Unknown]
  - Oropharyngeal pain [Unknown]
  - COVID-19 [Unknown]
  - Respiratory disorder [Unknown]
  - Asthma [Unknown]
  - Burning sensation [Unknown]
  - Flushing [Unknown]
  - Blister [Unknown]
  - Dysphagia [Unknown]
  - Burn oesophageal [Unknown]
  - Asthma [Unknown]
